FAERS Safety Report 6120483-9 (Version None)
Quarter: 2009Q1

REPORT INFORMATION
  Report Type: 
  Country: None (occurrence: None)
  Receive Date: 20090317
  Receipt Date: 20090311
  Transmission Date: 20090719
  Serious: Yes (Hospitalization)
  Sender: FDA-Public Use
  Company Number: US-BRISTOL-MYERS SQUIBB COMPANY-14539324

PATIENT
  Age: 65 Year
  Sex: Male

DRUGS (9)
  1. BLINDED: DAPAGLIFLOZIN [Suspect]
     Indication: TYPE 2 DIABETES MELLITUS
     Route: 048
     Dates: start: 20071030, end: 20090202
  2. METFORMIN HCL [Suspect]
     Indication: TYPE 2 DIABETES MELLITUS
     Dosage: PREVIOSLY TAKEN FROM 02APR05-29OCT07
     Route: 048
     Dates: start: 20071030, end: 20090202
  3. BLINDED: PLACEBO [Suspect]
     Indication: TYPE 2 DIABETES MELLITUS
     Route: 048
     Dates: start: 20071030, end: 20090202
  4. ACTOS [Concomitant]
     Indication: TYPE 2 DIABETES MELLITUS
     Dosage: ACTOS 15;07AUG08-15SEP08(15MG) ACTOS 30;16SEP08-19OCT08(30MG) ACTOS 45;20OCT08-02FEB09(45MG)
     Route: 048
     Dates: start: 20080807, end: 20090202
  5. NIASPAN [Concomitant]
     Indication: HYPERTRIGLYCERIDAEMIA
     Route: 048
     Dates: start: 20051027
  6. PROTONIX [Concomitant]
     Indication: GASTROOESOPHAGEAL REFLUX DISEASE
     Route: 048
     Dates: start: 20030127
  7. HYDROCHLOROTHIAZIDE [Concomitant]
     Indication: HYPERTENSION
     Route: 048
     Dates: start: 20050714
  8. FLONASE [Concomitant]
     Indication: SINUSITIS
     Route: 055
     Dates: start: 20050714
  9. ASPIRIN [Concomitant]
     Indication: CARDIOVASCULAR EVENT PROPHYLAXIS
     Route: 048
     Dates: start: 20051015

REACTIONS (1)
  - CHEST PAIN [None]
